FAERS Safety Report 4690713-9 (Version None)
Quarter: 2005Q2

REPORT INFORMATION
  Report Type: 
  Country: None (occurrence: None)
  Receive Date: 20050614
  Receipt Date: 20050614
  Transmission Date: 20051028
  Serious: Yes (Hospitalization)
  Sender: FDA-Public Use
  Company Number: None

PATIENT
  Age: 53 Year
  Sex: Male

DRUGS (3)
  1. ATGAM [Suspect]
     Indication: APLASTIC ANAEMIA
     Dosage: 2800 MG DAILY INTRAVENOUS
     Route: 042
     Dates: start: 20040627, end: 20040627
  2. FOLIC ACID [Concomitant]
  3. THIAMINE [Concomitant]

REACTIONS (4)
  - LIVER FUNCTION TEST ABNORMAL [None]
  - PYREXIA [None]
  - SERUM SICKNESS [None]
  - TACHYCARDIA [None]
